FAERS Safety Report 5889603-5 (Version None)
Quarter: 2008Q3

REPORT INFORMATION
  Report Type: 
  Country: None (occurrence: None)
  Receive Date: 20080919
  Receipt Date: 20080912
  Transmission Date: 20090109
  Serious: Yes (Hospitalization)
  Sender: FDA-Public Use
  Company Number: A0748281A

PATIENT
  Age: 49 Year
  Sex: Male
  Weight: 101.4 kg

DRUGS (11)
  1. AVANDIA [Suspect]
     Dosage: 4MG PER DAY
     Route: 048
     Dates: start: 20040201, end: 20070501
  2. ASPIRIN [Concomitant]
  3. HYTRIN [Concomitant]
  4. NIFEDIPINE [Concomitant]
  5. NITROGLYCERIN [Concomitant]
  6. COREG [Concomitant]
  7. LORAZEPAM [Concomitant]
  8. LIPITOR [Concomitant]
  9. HYDROCHLOROTHIAZIDE [Concomitant]
  10. HUMALOG [Concomitant]
  11. INSULIN [Concomitant]

REACTIONS (2)
  - CARDIAC DISORDER [None]
  - MYOCARDIAL INFARCTION [None]
